FAERS Safety Report 9581952 (Version 1)
Quarter: 2013Q4

REPORT INFORMATION
  Report Type: Spontaneous
  Country: US (occurrence: US)
  Receive Date: 20131002
  Receipt Date: 20131002
  Transmission Date: 20140711
  Serious: Yes (Hospitalization, Other)
  Sender: FDA-Public Use
  Company Number: US-TEVA-419381USA

PATIENT
  Sex: Female

DRUGS (2)
  1. AMIKACIN [Suspect]
     Indication: MENINGITIS
     Route: 042
  2. AMIKACIN [Suspect]
     Indication: KLEBSIELLA INFECTION

REACTIONS (3)
  - Meningitis [Unknown]
  - Klebsiella infection [Unknown]
  - Drug ineffective [Unknown]
